FAERS Safety Report 8249333-1 (Version None)
Quarter: 2012Q2

REPORT INFORMATION
  Report Type: 
  Country: None (occurrence: None)
  Receive Date: 20120402
  Receipt Date: 20120316
  Transmission Date: 20120825
  Serious: Yes (Hospitalization)
  Sender: FDA-Public Use
  Company Number: FR-CELGENEUS-056-21880-12032094

PATIENT
  Age: 63 Year
  Sex: Male
  Weight: 78 kg

DRUGS (7)
  1. METFORMIN HCL [Concomitant]
     Route: 065
  2. BISOPROLOL FUMARATE [Concomitant]
     Route: 065
  3. DEXAMETHASONE [Suspect]
     Route: 048
     Dates: start: 20111215
  4. DEXAMETHASONE [Suspect]
     Route: 065
  5. VELCADE [Suspect]
     Route: 065
     Dates: start: 20111215
  6. INSULINE [Concomitant]
     Route: 065
  7. REVLIMID [Suspect]
     Dosage: 25 MILLIGRAM
     Route: 048
     Dates: start: 20111215

REACTIONS (8)
  - NAUSEA [None]
  - DRY EYE [None]
  - DYSGEUSIA [None]
  - HYPERGLYCAEMIA [None]
  - INFLUENZA LIKE ILLNESS [None]
  - HYPOAESTHESIA [None]
  - LACRIMATION INCREASED [None]
  - MUSCLE SPASMS [None]
